FAERS Safety Report 5498272-8 (Version None)
Quarter: 2007Q4

REPORT INFORMATION
  Report Type: 
  Country: None (occurrence: None)
  Receive Date: 20071025
  Receipt Date: 20070424
  Transmission Date: 20080405
  Serious: No
  Sender: FDA-Public Use
  Company Number: A0648531A

PATIENT
  Age: 78 Year
  Sex: Female

DRUGS (5)
  1. ADVAIR DISKUS 100/50 [Suspect]
     Indication: ASTHMA
     Dosage: 1PUFF TWICE PER DAY
     Route: 055
     Dates: start: 19960101
  2. SYNTHROID [Concomitant]
  3. VITAMINS [Concomitant]
  4. CENTRUM [Concomitant]
  5. ARIMIDEX [Concomitant]

REACTIONS (2)
  - DYSPHONIA [None]
  - FUNGAL INFECTION [None]
